FAERS Safety Report 22173905 (Version 1)
Quarter: 2023Q2

REPORT INFORMATION
  Report Type: Report from Study
  Country: US (occurrence: US)
  Receive Date: 20230404
  Receipt Date: 20230404
  Transmission Date: 20230721
  Serious: Yes (Other)
  Sender: FDA-Public Use
  Company Number: US-ABBVIE-22K-163-4429463-00

PATIENT
  Sex: Female

DRUGS (3)
  1. RINVOQ [Suspect]
     Active Substance: UPADACITINIB
     Indication: Rheumatoid arthritis
     Dosage: 15 MG
     Route: 048
     Dates: start: 20220428
  2. RINVOQ [Suspect]
     Active Substance: UPADACITINIB
     Indication: Rheumatoid arthritis
     Dosage: 15 MG
     Route: 048
     Dates: start: 2022
  3. RINVOQ [Suspect]
     Active Substance: UPADACITINIB
     Indication: Rheumatoid arthritis
     Route: 048
     Dates: start: 20220428

REACTIONS (16)
  - Knee arthroplasty [Recovering/Resolving]
  - Chills [Recovered/Resolved]
  - Mobility decreased [Unknown]
  - Musculoskeletal stiffness [Unknown]
  - Arthralgia [Recovered/Resolved]
  - Joint range of motion decreased [Unknown]
  - Loss of personal independence in daily activities [Unknown]
  - Pain [Unknown]
  - Knee arthroplasty [Recovering/Resolving]
  - Arthritis [Unknown]
  - COVID-19 [Not Recovered/Not Resolved]
  - General physical health deterioration [Not Recovered/Not Resolved]
  - Hyperhidrosis [Recovered/Resolved]
  - Wheelchair user [Unknown]
  - Sinusitis [Recovered/Resolved]
  - Respiratory tract infection [Recovered/Resolved]

NARRATIVE: CASE EVENT DATE: 20220101
